FAERS Safety Report 4751543-2 (Version None)
Quarter: 2005Q3

REPORT INFORMATION
  Report Type: 
  Country: None (occurrence: None)
  Receive Date: 20050823
  Receipt Date: 20050823
  Transmission Date: 20060218
  Serious: No
  Sender: FDA-Public Use
  Company Number: None

PATIENT
  Age: 78 Year
  Sex: Female
  Weight: 88.4514 kg

DRUGS (1)
  1. CELEBREX [Suspect]
     Indication: OSTEOARTHRITIS
     Dosage: 1 QD
     Dates: start: 20010815, end: 20020201

REACTIONS (6)
  - ABDOMINAL DISCOMFORT [None]
  - CARDIAC FLUTTER [None]
  - DRUG INEFFECTIVE [None]
  - HEADACHE [None]
  - OEDEMA PERIPHERAL [None]
  - RASH [None]
